FAERS Safety Report 4286124-0 (Version None)
Quarter: 2004Q1

REPORT INFORMATION
  Report Type: 
  Country: None (occurrence: None)
  Receive Date: 20040120
  Receipt Date: 20030206
  Transmission Date: 20041129
  Serious: Yes (Hospitalization)
  Sender: FDA-Public Use
  Company Number: BDI-004847

PATIENT
  Age: 81 Year
  Sex: Female

DRUGS (13)
  1. PROHANCE [Suspect]
     Indication: DIAGNOSTIC PROCEDURE
     Dosage: 30 ML ONCE IV
     Route: 042
     Dates: start: 20030204, end: 20030204
  2. PROHANCE [Suspect]
     Indication: HYPERTENSION
     Dosage: 30 ML ONCE IV
     Route: 042
     Dates: start: 20030204, end: 20030204
  3. LASIX [Concomitant]
  4. TOPROL-XL [Concomitant]
  5. AGGRENOX [Concomitant]
  6. LIPITOR [Concomitant]
  7. CARBIDOPA [Concomitant]
  8. LACTAID [Concomitant]
  9. LOZOL [Concomitant]
  10. ASPIRIN [Concomitant]
  11. PERCOCET [Concomitant]
  12. AGGRENOX [Concomitant]
  13. CARBIDOPA [Concomitant]

REACTIONS (6)
  - ASTHENIA [None]
  - DIZZINESS [None]
  - DYSPHAGIA [None]
  - FEELING ABNORMAL [None]
  - HYPOTENSION [None]
  - NECK PAIN [None]
